FAERS Safety Report 5856737-0 (Version None)
Quarter: 2008Q3

REPORT INFORMATION
  Report Type: 
  Country: None (occurrence: None)
  Receive Date: 20080822
  Receipt Date: 20080822
  Transmission Date: 20090109
  Serious: Yes (Hospitalization)
  Sender: FDA-Public Use
  Company Number: None

PATIENT
  Age: 35 Year
  Sex: Female
  Weight: 63.5036 kg

DRUGS (1)
  1. MIRENA [Suspect]
     Indication: CONTRACEPTION
     Dosage: 52MG  INTRA-UTERINE
     Route: 015
     Dates: start: 20070405, end: 20080816

REACTIONS (10)
  - ABDOMINAL DISTENSION [None]
  - ABDOMINAL PAIN [None]
  - CHEST PAIN [None]
  - DRUG EXPOSURE DURING PREGNANCY [None]
  - DYSPNOEA [None]
  - ECTOPIC PREGNANCY TERMINATION [None]
  - ECTOPIC PREGNANCY WITH INTRAUTERINE DEVICE [None]
  - IUD MIGRATION [None]
  - MUSCULOSKELETAL PAIN [None]
  - RUPTURED ECTOPIC PREGNANCY [None]
